FAERS Safety Report 10789014 (Version 4)
Quarter: 2017Q1

REPORT INFORMATION
  Report Type: Spontaneous
  Country: US (occurrence: US)
  Receive Date: 20150212
  Receipt Date: 20170317
  Transmission Date: 20170428
  Serious: Yes (Other)
  Sender: FDA-Public Use
  Company Number: US-ABBVIE-15P-163-1344772-00

PATIENT
  Sex: Female

DRUGS (1)
  1. CREON [Suspect]
     Active Substance: PANCRELIPASE AMYLASE\PANCRELIPASE LIPASE\PANCRELIPASE PROTEASE
     Indication: PRODUCT USED FOR UNKNOWN INDICATION
     Route: 065

REACTIONS (9)
  - Raynaud^s phenomenon [Unknown]
  - Fluid intake reduced [Unknown]
  - Depression [Unknown]
  - Nausea [Unknown]
  - Gallbladder operation [Unknown]
  - Pancreatic stent removal [Unknown]
  - Anxiety [Unknown]
  - Hypophagia [Unknown]
  - Pain [Unknown]
